FAERS Safety Report 5692568-2 (Version None)
Quarter: 2008Q2

REPORT INFORMATION
  Report Type: 
  Country: None (occurrence: None)
  Receive Date: 20080328
  Receipt Date: 20071205
  Transmission Date: 20081010
  Serious: No
  Sender: FDA-Public Use
  Company Number: US-WYE-H01584007

PATIENT
  Age: 55 Year
  Sex: Male

DRUGS (2)
  1. TORISEL [Suspect]
     Dosage: PATIENT RECEIVED APPROXIMATELY 12.1MG, INTRAVENOUS ; 25 MG X 3 DOSES
     Route: 042
     Dates: start: 20071101, end: 20071101
  2. TORISEL [Suspect]
     Dosage: PATIENT RECEIVED APPROXIMATELY 12.1MG, INTRAVENOUS ; 25 MG X 3 DOSES
     Route: 042
     Dates: start: 20071205, end: 20071205

REACTIONS (3)
  - INFUSION SITE PAIN [None]
  - LIMB DISCOMFORT [None]
  - WRONG TECHNIQUE IN DRUG USAGE PROCESS [None]
